FAERS Safety Report 9799893 (Version 1)
Quarter: 2014Q1

REPORT INFORMATION
  Report Type: Spontaneous
  Country: CN (occurrence: CN)
  Receive Date: 20140106
  Receipt Date: 20140106
  Transmission Date: 20141002
  Serious: Yes (Other)
  Sender: FDA-Public Use
  Company Number: CN-GLAXOSMITHKLINE-B0957399A

PATIENT
  Age: 43 Year
  Sex: Male

DRUGS (1)
  1. HEPTODIN [Suspect]
     Indication: CHRONIC HEPATITIS B
     Dosage: 1TAB PER DAY
     Route: 048

REACTIONS (2)
  - Hepatic fibrosis [Unknown]
  - Hyaluronic acid increased [Unknown]
